FAERS Safety Report 14982602 (Version 2)
Quarter: 2018Q2

REPORT INFORMATION
  Report Type: Spontaneous
  Country: DE (occurrence: DE)
  Receive Date: 20180607
  Receipt Date: 20180608
  Transmission Date: 20180711
  Serious: Yes (Hospitalization)
  Sender: FDA-Public Use
  Company Number: DE-009507513-1805DEU014179

PATIENT
  Age: 79 Year
  Sex: Female

DRUGS (12)
  1. IRON (UNSPECIFIED) [Concomitant]
     Active Substance: IRON
     Dosage: NOT KNOWN(NK) MG, 1-0-0-0
  2. AMLODIPINE [Concomitant]
     Active Substance: AMLODIPINE BESYLATE
     Dosage: 5 MG, 1-0-1-0
  3. GREPID [Suspect]
     Active Substance: CLOPIDOGREL BESILATE
     Dosage: 75 MG, 1-0-0-0
  4. MORPHINE [Concomitant]
     Active Substance: MORPHINE
     Dosage: 100 MG, 1-0-1-0
  5. FOSTER [Concomitant]
     Active Substance: BECLOMETHASONE\FORMOTEROL
     Dosage: 100|6 ?G, 1-0-1-0
  6. INTRON A [Suspect]
     Active Substance: INTERFERON ALFA-2B
     Dosage: 18000000 IE, TUESDAY, THURSDAY, SATURDAY
  7. NITROLINGUAL [Concomitant]
     Active Substance: NITROGLYCERIN
     Dosage: NOT KNOWN(NK) MG, IF NEED
  8. TORSEMIDE. [Concomitant]
     Active Substance: TORSEMIDE
     Dosage: 10 MG, 1-0.5-0-0
  9. CETIRIZINE HYDROCHLORIDE. [Concomitant]
     Active Substance: CETIRIZINE HYDROCHLORIDE
     Dosage: 10 MG, 0-0-1-0
  10. ELIQUIS [Suspect]
     Active Substance: APIXABAN
     Dosage: 2.5 MG, 1-0-1-0
  11. PANTOPRAZOLE [Concomitant]
     Active Substance: PANTOPRAZOLE
     Dosage: 40 MG, 1-0-1-0
  12. ALBUTEROL. [Concomitant]
     Active Substance: ALBUTEROL
     Dosage: NOT KNOWN (NK) MG, NEED

REACTIONS (3)
  - Malaise [Unknown]
  - Anaemia [Unknown]
  - Haematemesis [Unknown]
